FAERS Safety Report 6713281-6 (Version None)
Quarter: 2010Q2

REPORT INFORMATION
  Report Type: 
  Country: None (occurrence: None)
  Receive Date: 20100506
  Receipt Date: 20100428
  Transmission Date: 20101027
  Serious: Yes (Hospitalization)
  Sender: FDA-Public Use
  Company Number: FR-WYE-H14919710

PATIENT
  Age: 68 Year
  Sex: Male

DRUGS (8)
  1. CORDARONE [Suspect]
     Indication: ATRIAL FIBRILLATION
     Route: 048
     Dates: end: 20071201
  2. LASIX [Concomitant]
  3. TAHOR [Concomitant]
  4. KARDEGIC [Concomitant]
  5. GLUCOPHAGE [Concomitant]
  6. ZANIDIP [Concomitant]
  7. ACOMPLIA [Concomitant]
  8. TRIATEC [Concomitant]

REACTIONS (2)
  - LUNG DISORDER [None]
  - TOXIC NODULAR GOITRE [None]
